FAERS Safety Report 6293778-6 (Version None)
Quarter: 2009Q3

REPORT INFORMATION
  Report Type: 
  Country: None (occurrence: None)
  Receive Date: 20090803
  Receipt Date: 20090723
  Transmission Date: 20100115
  Serious: Yes (Hospitalization, Other)
  Sender: FDA-Public Use
  Company Number: GB-ASTRAZENECA-2009SE05672

PATIENT
  Age: 32 Year
  Sex: Female

DRUGS (5)
  1. SEROQUEL [Suspect]
     Indication: BIPOLAR DISORDER
     Route: 048
     Dates: start: 20090604, end: 20090611
  2. CARBAMAZEPINE [Concomitant]
     Indication: BIPOLAR DISORDER
     Route: 048
     Dates: start: 20070101, end: 20090609
  3. CHLORPHENIRAMINE MALEATE [Concomitant]
     Dosage: AS NECESSARY
     Route: 048
     Dates: start: 20090601, end: 20090601
  4. ACETAMINOPHEN W/ CODEINE [Concomitant]
     Indication: ANALGESIA
     Dosage: AS NECESSARY
     Route: 048
     Dates: start: 20090601, end: 20090601
  5. TEMAZEPAM [Concomitant]
     Indication: INSOMNIA
     Dosage: AS NECESSARY
     Route: 048
     Dates: start: 20090701

REACTIONS (2)
  - HEPATITIS [None]
  - JAUNDICE [None]
